FAERS Safety Report 18758069 (Version 3)
Quarter: 2021Q1

REPORT INFORMATION
  Report Type: Spontaneous
  Country: US (occurrence: US)
  Receive Date: 20210119
  Receipt Date: 20210325
  Transmission Date: 20210419
  Serious: No
  Sender: FDA-Public Use
  Company Number: US-PFIZER INC-2021029657

PATIENT
  Age: 69 Year
  Sex: Male

DRUGS (2)
  1. MEKTOVI [Suspect]
     Active Substance: BINIMETINIB
     Indication: MALIGNANT MELANOMA
     Dosage: 30 MG, 2X/DAY
     Dates: start: 20200815, end: 20210317
  2. BRAFTOVI [Suspect]
     Active Substance: ENCORAFENIB
     Indication: MALIGNANT MELANOMA
     Dosage: 300 MG, 1X/DAY
     Dates: start: 20200815, end: 20210317

REACTIONS (4)
  - Fatigue [Unknown]
  - Ocular toxicity [Unknown]
  - Arthralgia [Unknown]
  - Product dose omission issue [Unknown]
